FAERS Safety Report 8968854 (Version 1)
Quarter: 2012Q4

REPORT INFORMATION
  Report Type: 
  Country: US (occurrence: US)
  Receive Date: 20121218
  Receipt Date: 20121218
  Transmission Date: 20130627
  Serious: No
  Sender: FDA-Public Use
  Company Number: US-BRISTOL-MYERS SQUIBB COMPANY-16366999

PATIENT
  Age: 8 Year
  Sex: Male

DRUGS (4)
  1. ABILIFY TABS 2 MG [Suspect]
     Dosage: 1DF=1 tab every day
  2. ABILIFY ORAL SOLUTION [Suspect]
  3. ALBUTEROL [Concomitant]
     Dosage: Albuterol nebulizer
  4. PULMICORT [Concomitant]

REACTIONS (2)
  - Dysphagia [Unknown]
  - Wrong technique in drug usage process [Unknown]
